FAERS Safety Report 12862757 (Version 1)
Quarter: 2016Q4

REPORT INFORMATION
  Report Type: Spontaneous
  Country: US (occurrence: US)
  Receive Date: 20161019
  Receipt Date: 20161019
  Transmission Date: 20170207
  Serious: No
  Sender: FDA-Public Use
  Company Number: US-TEVA-704414USA

PATIENT

DRUGS (7)
  1. MOBIC [Concomitant]
     Active Substance: MELOXICAM
  2. MOTRIN [Concomitant]
     Active Substance: IBUPROFEN
  3. DIOVAN [Concomitant]
     Active Substance: VALSARTAN
  4. FLONASE [Concomitant]
     Active Substance: FLUTICASONE PROPIONATE
  5. COPAXONE [Suspect]
     Active Substance: GLATIRAMER ACETATE
     Indication: MULTIPLE SCLEROSIS
     Route: 058
     Dates: start: 20140923
  6. VALIUM [Concomitant]
     Active Substance: DIAZEPAM
  7. PROTONIX [Concomitant]
     Active Substance: PANTOPRAZOLE SODIUM

REACTIONS (1)
  - Fatigue [Not Recovered/Not Resolved]

NARRATIVE: CASE EVENT DATE: 2016
